FAERS Safety Report 7507563-8 (Version None)
Quarter: 2011Q2

REPORT INFORMATION
  Report Type: 
  Country: None (occurrence: None)
  Receive Date: 20110526
  Receipt Date: 20110518
  Transmission Date: 20111010
  Serious: Yes (Other)
  Sender: FDA-Public Use
  Company Number: US-RB-027726-11

PATIENT
  Sex: Female

DRUGS (5)
  1. SUBOXONE [Suspect]
     Indication: DRUG DEPENDENCE
     Route: 060
     Dates: start: 20110509
  2. METHADONE HCL [Suspect]
     Indication: DRUG DEPENDENCE
     Dosage: 235 MG PER DAY TAPERED TO 117 MG PER DAY.
     Dates: end: 20110420
  3. LEVATHROID [Concomitant]
     Indication: HYPOTHYROIDISM
     Dosage: DOSING INFORMATION UNKNOWN
  4. SUBUTEX [Suspect]
     Indication: DRUG DEPENDENCE
     Dosage: DOSING INFORMATION UNKNOWN
     Route: 060
     Dates: start: 20110426, end: 20110429
  5. PLAVIX [Concomitant]
     Indication: THROMBOSIS
     Dosage: DOSING INFORMATION UNKNOWN

REACTIONS (7)
  - INTENTIONAL OVERDOSE [None]
  - PARANOIA [None]
  - HALLUCINATION [None]
  - DEPRESSED MOOD [None]
  - TACHYPHRENIA [None]
  - AGITATION [None]
  - CONFUSIONAL STATE [None]
